FAERS Safety Report 7570855-0 (Version None)
Quarter: 2011Q2

REPORT INFORMATION
  Report Type: 
  Country: None (occurrence: None)
  Receive Date: 20110622
  Receipt Date: 20110622
  Transmission Date: 20111010
  Serious: Yes (Hospitalization)
  Sender: FDA-Public Use
  Company Number: None

PATIENT
  Age: 69 Year
  Sex: Female
  Weight: 57.6068 kg

DRUGS (2)
  1. LOTRONEX [Suspect]
     Indication: DIARRHOEA
     Dosage: 0.5 MG. 1/DAY ORAL
     Route: 048
     Dates: start: 20110425, end: 20110513
  2. LOTRONEX [Suspect]
     Dosage: 0.5 MG 2/DAY ORAL
     Route: 048
     Dates: start: 20110514, end: 20110524

REACTIONS (3)
  - DRUG EFFECT DECREASED [None]
  - INTESTINAL OBSTRUCTION [None]
  - VOMITING [None]
